FAERS Safety Report 8543524-8 (Version None)
Quarter: 2012Q3

REPORT INFORMATION
  Report Type: 
  Country: None (occurrence: None)
  Receive Date: 20120727
  Receipt Date: 20120726
  Transmission Date: 20120928
  Serious: Yes (Death)
  Sender: FDA-Public Use
  Company Number: PHHY2012NL056817

PATIENT
  Sex: Female
  Weight: 56 kg

DRUGS (4)
  1. ZOMETA [Suspect]
     Dosage: 4 MG / 100 ML, 1X PER 28 DAYS
     Route: 042
     Dates: start: 20111103
  2. ZOMETA [Suspect]
     Dosage: 4 MG / 100 ML, 1X PER 28 DAYS
     Route: 042
     Dates: start: 20120229, end: 20120323
  3. ZOMETA [Suspect]
     Dosage: 4 MG / 100 ML, 1X PER 28 DAYS
     Route: 042
     Dates: start: 20120201
  4. ZOMETA [Suspect]
     Indication: METASTASES TO BONE
     Dosage: 4 MG / 100 ML, 1X PER 28 DAYS
     Route: 042
     Dates: start: 20111024

REACTIONS (4)
  - NEOPLASM PROGRESSION [None]
  - TERMINAL STATE [None]
  - NEOPLASM MALIGNANT [None]
  - DRUG RESISTANCE [None]
